FAERS Safety Report 7904268-6 (Version None)
Quarter: 2011Q4

REPORT INFORMATION
  Report Type: 
  Country: None (occurrence: None)
  Receive Date: 20111109
  Receipt Date: 20111101
  Transmission Date: 20120403
  Serious: Yes (Other)
  Sender: FDA-Public Use
  Company Number: BR-PFIZER INC-2011236693

PATIENT
  Age: 67 Year
  Sex: Male

DRUGS (2)
  1. CAVERJECT [Suspect]
     Indication: RADICAL PROSTATECTOMY
     Dosage: UNK
     Route: 017
     Dates: start: 20060101
  2. ZOLADEX [Suspect]
     Indication: LIBIDO DISORDER
     Dosage: UNK
     Dates: start: 20080901, end: 20100101

REACTIONS (3)
  - PROSTATIC SPECIFIC ANTIGEN INCREASED [None]
  - DRUG INEFFECTIVE [None]
  - ANTIANDROGEN THERAPY [None]
